FAERS Safety Report 25374283 (Version 3)
Quarter: 2025Q2

REPORT INFORMATION
  Report Type: Report from Study
  Country: TW (occurrence: TW)
  Receive Date: 20250529
  Receipt Date: 20250620
  Transmission Date: 20250717
  Serious: Yes (Hospitalization)
  Sender: MERCK SHARP & DOHME LLC
  Company Number: TW-ASTRAZENECA-202504GLO017042TW

PATIENT
  Age: 45 Year
  Sex: Female

DRUGS (6)
  1. PEMBROLIZUMAB [Suspect]
     Active Substance: PEMBROLIZUMAB
     Indication: HER2 negative breast cancer
     Route: 042
     Dates: start: 20240429, end: 20250326
  2. CARBOPLATIN [Suspect]
     Active Substance: CARBOPLATIN
     Indication: HER2 negative breast cancer
     Route: 042
     Dates: start: 20240429, end: 20240724
  3. CELEBREX [Concomitant]
     Active Substance: CELECOXIB
     Indication: Product used for unknown indication
     Route: 065
  4. CYCLOPHOSPHAMIDE [Suspect]
     Active Substance: CYCLOPHOSPHAMIDE
     Indication: HER2 negative breast cancer
     Route: 042
     Dates: start: 20240721, end: 20241002
  5. PACLITAXEL [Suspect]
     Active Substance: PACLITAXEL
     Indication: HER2 negative breast cancer
     Route: 042
     Dates: start: 20240429, end: 20240724
  6. EPIRUBICIN [Suspect]
     Active Substance: EPIRUBICIN
     Indication: HER2 negative breast cancer
     Route: 042
     Dates: start: 20240731, end: 20241002

REACTIONS (1)
  - Abdominal infection [Recovered/Resolved]

NARRATIVE: CASE EVENT DATE: 20250418
